FAERS Safety Report 4870108-5 (Version None)
Quarter: 2005Q4

REPORT INFORMATION
  Report Type: 
  Country: None (occurrence: None)
  Receive Date: 20051229
  Receipt Date: 20051229
  Transmission Date: 20060501
  Serious: Yes (Hospitalization)
  Sender: FDA-Public Use
  Company Number: None

PATIENT
  Age: 66 Year
  Sex: Male
  Weight: 97.977 kg

DRUGS (1)
  1. CEFAZOLIN [Suspect]
     Indication: PREOPERATIVE CARE
     Dosage: 1 GM   1 DOSE   IV
     Route: 042
     Dates: start: 20051201, end: 20051201

REACTIONS (4)
  - DIARRHOEA [None]
  - LABORATORY TEST ABNORMAL [None]
  - NAUSEA [None]
  - VOMITING [None]
